FAERS Safety Report 9111790 (Version 1)
Quarter: 2013Q1

REPORT INFORMATION
  Report Type: Spontaneous
  Country: US (occurrence: US)
  Receive Date: 20130219
  Receipt Date: 20130219
  Transmission Date: 20140127
  Serious: No
  Sender: FDA-Public Use
  Company Number: US-BRISTOL-MYERS SQUIBB COMPANY-16664559

PATIENT
  Age: 79 Year
  Sex: Female
  Weight: 180 kg

DRUGS (2)
  1. ORENCIA [Suspect]
     Indication: RHEUMATOID ARTHRITIS
     Dosage: NO OF INF:1 LAST INF ON 21JUL12,AUG12
     Route: 042
     Dates: start: 20120529
  2. OMEPRAZOLE [Concomitant]
     Dates: start: 2009

REACTIONS (8)
  - Constipation [Recovering/Resolving]
  - Peripheral coldness [Recovering/Resolving]
  - Choking [Unknown]
  - Dyspnoea [Unknown]
  - Pruritus [Unknown]
  - Gastrooesophageal reflux disease [Unknown]
  - Rhinitis allergic [Unknown]
  - Malaise [Unknown]
